FAERS Safety Report 7669338-9 (Version None)
Quarter: 2011Q3

REPORT INFORMATION
  Report Type: 
  Country: None (occurrence: None)
  Receive Date: 20110808
  Receipt Date: 20110726
  Transmission Date: 20111222
  Serious: Yes (Other)
  Sender: FDA-Public Use
  Company Number: US-ROCHE-772707

PATIENT
  Sex: Female
  Weight: 56.7 kg

DRUGS (5)
  1. ORTHO TRI-CYCLEN [Concomitant]
  2. ACCUTANE [Suspect]
     Route: 048
     Dates: end: 20010516
  3. IBUPROFEN [Concomitant]
     Dosage: DOSE: AS NEEDED
  4. ACCUTANE [Suspect]
     Indication: ACNE
     Route: 048
     Dates: start: 20001016, end: 20010401
  5. NAPROXEN (ALEVE) [Concomitant]

REACTIONS (7)
  - COLITIS ULCERATIVE [None]
  - DEPRESSED MOOD [None]
  - UTERINE LEIOMYOMA [None]
  - INFLAMMATORY BOWEL DISEASE [None]
  - PROCTITIS ULCERATIVE [None]
  - EMOTIONAL DISTRESS [None]
  - THYROID DISORDER [None]
